FAERS Safety Report 7433485-7 (Version None)
Quarter: 2011Q2

REPORT INFORMATION
  Report Type: 
  Country: None (occurrence: None)
  Receive Date: 20110422
  Receipt Date: 20110131
  Transmission Date: 20111010
  Serious: No
  Sender: FDA-Public Use
  Company Number: US-MUTUAL PHARMACEUTICAL COMPANY, INC.-CLCY20110009

PATIENT
  Age: 81 Year
  Sex: Male
  Weight: 78.088 kg

DRUGS (5)
  1. COLCRYS [Suspect]
     Indication: CHEST PAIN
     Route: 048
     Dates: start: 20110109, end: 20110126
  2. RANITIDINE [Concomitant]
     Indication: PROPHYLAXIS AGAINST GASTROINTESTINAL ULCER
     Route: 065
  3. IBUPROFEN [Concomitant]
     Indication: CHEST PAIN
     Route: 065
     Dates: start: 20110109
  4. BIAXIN [Concomitant]
     Indication: PNEUMONIA
     Route: 065
  5. COLCRYS [Suspect]
     Dates: start: 20110127, end: 20110127

REACTIONS (1)
  - DIARRHOEA [None]
